FAERS Safety Report 15737141 (Version 8)
Quarter: 2021Q3

REPORT INFORMATION
  Report Type: Spontaneous
  Country: US (occurrence: US)
  Receive Date: 20181218
  Receipt Date: 20210728
  Transmission Date: 20211014
  Serious: No
  Sender: FDA-Public Use
  Company Number: US-SA-2018SA339207

PATIENT
  Age: 9 Year
  Sex: Male

DRUGS (4)
  1. CEREZYME [Suspect]
     Active Substance: IMIGLUCERASE
     Dosage: 2000 DF, QOW
     Route: 065
     Dates: start: 20181025
  2. CEREZYME [Suspect]
     Active Substance: IMIGLUCERASE
     Indication: GAUCHER^S DISEASE
     Dosage: 1600 DF, QOW
     Route: 041
     Dates: start: 20181027
  3. CEREZYME [Suspect]
     Active Substance: IMIGLUCERASE
     Dosage: 2400 IU, QOW
     Route: 065
  4. CEREZYME [Suspect]
     Active Substance: IMIGLUCERASE
     Dosage: 2000 DF, QOW
     Route: 041

REACTIONS (9)
  - Product preparation error [Unknown]
  - Illness [Unknown]
  - Poor venous access [Unknown]
  - Pharyngitis streptococcal [Unknown]
  - Infusion site haemorrhage [Unknown]
  - Central venous catheterisation [Unknown]
  - Medical device pain [Unknown]
  - Pyrexia [Unknown]
  - Incorrect route of product administration [Unknown]

NARRATIVE: CASE EVENT DATE: 20181025
